FAERS Safety Report 6907289-5 (Version None)
Quarter: 2010Q3

REPORT INFORMATION
  Report Type: 
  Country: None (occurrence: None)
  Receive Date: 20100730
  Receipt Date: 20100712
  Transmission Date: 20110219
  Serious: Yes (Hospitalization)
  Sender: FDA-Public Use
  Company Number: 015267

PATIENT
  Sex: Female
  Weight: 88 kg

DRUGS (15)
  1. CERTOLIZUMAB PEGOL [Suspect]
     Indication: RHEUMATOID ARTHRITIS
     Dosage: SEE IMAGE
     Route: 058
     Dates: start: 20090209, end: 20090714
  2. CERTOLIZUMAB PEGOL [Suspect]
     Indication: RHEUMATOID ARTHRITIS
     Dosage: SEE IMAGE
     Route: 058
     Dates: start: 20081114, end: 20091212
  3. CERTOLIZUMAB PEGOL [Suspect]
     Indication: RHEUMATOID ARTHRITIS
     Dosage: SEE IMAGE
     Route: 058
     Dates: start: 20091229, end: 20100127
  4. CERTOLIZUMAB PEGOL [Suspect]
     Indication: RHEUMATOID ARTHRITIS
     Dosage: SEE IMAGE
     Route: 058
     Dates: start: 20090728, end: 20100414
  5. TYLENOL (CAPLET) [Concomitant]
  6. PLAQUENIL [Concomitant]
  7. ULTRAM [Concomitant]
  8. INEXIUM /01479302/ [Concomitant]
  9. ADIPEX [Concomitant]
  10. RESTASIS [Concomitant]
  11. CYMBALTA [Concomitant]
  12. BENICAR HCT [Concomitant]
  13. NEBIVOLOL [Concomitant]
  14. MIRAPEX [Concomitant]
  15. CLONAZEPAM [Concomitant]

REACTIONS (1)
  - ARTHRALGIA [None]
